FAERS Safety Report 11915842 (Version 1)
Quarter: 2016Q1

REPORT INFORMATION
  Report Type: Spontaneous
  Country: US (occurrence: None)
  Receive Date: 20160113
  Receipt Date: 20160113
  Transmission Date: 20160526
  Serious: Yes (Life-Threatening, Hospitalization)
  Sender: FDA-Public Use
  Company Number: None

PATIENT
  Age: 78 Year
  Sex: Male
  Weight: 99.1 kg

DRUGS (1)
  1. PIPERACILLIN/TAZOBACTAM [Suspect]
     Active Substance: PIPERACILLIN SODIUM\TAZOBACTAM SODIUM
     Indication: ANAPHYLACTIC REACTION
     Dosage: 3.375 GM  ONCE  IV
     Route: 042
     Dates: start: 20151217, end: 20151217

REACTIONS (7)
  - Respiratory acidosis [None]
  - Anaphylactic reaction [None]
  - Seizure like phenomena [None]
  - Myocardial ischaemia [None]
  - Acute myocardial infarction [None]
  - Hepatic enzyme increased [None]
  - Troponin increased [None]

NARRATIVE: CASE EVENT DATE: 20151217
